FAERS Safety Report 13766796 (Version 2)
Quarter: 2017Q4

REPORT INFORMATION
  Report Type: Spontaneous
  Country: IT (occurrence: IT)
  Receive Date: 20170719
  Receipt Date: 20171114
  Transmission Date: 20180320
  Serious: Yes (Hospitalization)
  Sender: FDA-Public Use
  Company Number: IT-MERCK KGAA-2023461

PATIENT
  Age: 4 Year
  Sex: Female

DRUGS (2)
  1. LENDORMIN [Suspect]
     Active Substance: BROTIZOLAM
     Route: 048
     Dates: start: 20170704
  2. NOVOTHYROX [Suspect]
     Active Substance: LEVOTHYROXINE SODIUM
     Indication: ACCIDENTAL EXPOSURE TO PRODUCT
     Route: 048
     Dates: start: 20170704

REACTIONS (1)
  - Somnolence [None]

NARRATIVE: CASE EVENT DATE: 20170704
